FAERS Safety Report 4915261-X (Version None)
Quarter: 2006Q1

REPORT INFORMATION
  Report Type: 
  Country: None (occurrence: None)
  Receive Date: 20060216
  Receipt Date: 20060216
  Transmission Date: 20060701
  Serious: Yes (Hospitalization)
  Sender: FDA-Public Use
  Company Number: None

PATIENT
  Sex: Male
  Weight: 91.173 kg

DRUGS (6)
  1. COREG [Suspect]
     Indication: HYPERTENSION
     Dosage: PO    PRIOR TO ADMISSION
     Route: 048
  2. LIPITOR [Concomitant]
  3. ATACAND [Concomitant]
  4. CELEBREX [Concomitant]
  5. NEXIUM [Concomitant]
  6. FOLIC ACID [Concomitant]

REACTIONS (2)
  - ASTHENIA [None]
  - BRADYCARDIA [None]
